FAERS Safety Report 10781446 (Version 7)
Quarter: 2015Q4

REPORT INFORMATION
  Report Type: Spontaneous
  Country: US (occurrence: US)
  Receive Date: 20150210
  Receipt Date: 20151123
  Transmission Date: 20160304
  Serious: Yes (Other)
  Sender: FDA-Public Use
  Company Number: US-GLAXOSMITHKLINE-A1069845A

PATIENT
  Age: 52 Year
  Sex: Female

DRUGS (7)
  1. TRACLEER [Concomitant]
     Active Substance: BOSENTAN
  2. FLOLAN [Suspect]
     Active Substance: EPOPROSTENOL SODIUM
     Indication: PULMONARY HYPERTENSION
     Dosage: 33.45 UNK, U
     Route: 065
     Dates: start: 20030621
  3. FLOLAN [Suspect]
     Active Substance: EPOPROSTENOL SODIUM
     Dosage: 33.45 UNK, U
     Route: 065
     Dates: start: 20030621
  4. FLOLAN [Suspect]
     Active Substance: EPOPROSTENOL SODIUM
     Dosage: 33.45 UNK, CO
     Route: 042
     Dates: start: 20030620
  5. REVATIO [Concomitant]
     Active Substance: SILDENAFIL CITRATE
  6. FLOLAN [Suspect]
     Active Substance: EPOPROSTENOL SODIUM
     Dosage: 70 NG/KG/MIN, CO
  7. FLOLAN [Suspect]
     Active Substance: EPOPROSTENOL SODIUM
     Indication: COR PULMONALE CHRONIC
     Dosage: 33.48 NG/KG/MIN, CONCENTRATION: 45,000 NG/ML
     Route: 065
     Dates: start: 20030620

REACTIONS (14)
  - Hypersensitivity [Unknown]
  - Nasopharyngitis [Unknown]
  - Cough [Not Recovered/Not Resolved]
  - Swelling [Unknown]
  - Pain in jaw [Unknown]
  - Oxygen saturation decreased [Unknown]
  - Weight decreased [Unknown]
  - Oxygen consumption increased [Unknown]
  - Influenza [Recovered/Resolved]
  - Diarrhoea [Unknown]
  - Flushing [Unknown]
  - Dyspnoea [Unknown]
  - Pneumonia [Recovered/Resolved]
  - Dyspnoea exertional [Unknown]

NARRATIVE: CASE EVENT DATE: 201504
